FAERS Safety Report 10461641 (Version 1)
Quarter: 2014Q3

REPORT INFORMATION
  Report Type: Spontaneous
  Country: US (occurrence: US)
  Receive Date: 20140918
  Receipt Date: 20140918
  Transmission Date: 20150326
  Serious: No
  Sender: FDA-Public Use
  Company Number: US-PFIZER INC-2014256670

PATIENT
  Age: 81 Year
  Sex: Male
  Weight: 136 kg

DRUGS (2)
  1. OMEGA XL [Suspect]
     Active Substance: DIETARY SUPPLEMENT
     Dosage: UNK
  2. ADVIL [Suspect]
     Active Substance: IBUPROFEN
     Indication: PAIN
     Dosage: 200 MG, 2X/DAY (ONE IN THE MORNING AND ONE IN THE NIGHT)
     Route: 048
     Dates: start: 201408, end: 201409

REACTIONS (3)
  - Gastric disorder [Unknown]
  - Abdominal distension [Unknown]
  - Abdominal pain upper [Unknown]

NARRATIVE: CASE EVENT DATE: 2014
